FAERS Safety Report 8801732 (Version 2)
Quarter: 2012Q4

REPORT INFORMATION
  Report Type: 
  Country: KR (occurrence: KR)
  Receive Date: 20120921
  Receipt Date: 20121120
  Transmission Date: 20130627
  Serious: Yes (Death)
  Sender: FDA-Public Use
  Company Number: KR-ASTRAZENECA-2012SE72782

PATIENT
  Age: 28 Year
  Sex: Female

DRUGS (4)
  1. PROPOFOL [Suspect]
  2. FENTANYL [Suspect]
  3. LABETALOL [Concomitant]
  4. ONDANSETRON [Concomitant]

REACTIONS (1)
  - Death [Fatal]
